FAERS Safety Report 5443411-8 (Version None)
Quarter: 2007Q3

REPORT INFORMATION
  Report Type: 
  Country: None (occurrence: None)
  Receive Date: 20070730
  Receipt Date: 20070417
  Transmission Date: 20080115
  Serious: Yes (Other)
  Sender: FDA-Public Use
  Company Number: 235096

PATIENT
  Age: 48 Year
  Sex: Female
  Weight: 87.5 kg

DRUGS (3)
  1. RITUXAN [Suspect]
     Indication: RHEUMATOID ARTHRITIS
     Dates: start: 20061227
  2. PREDNISONE TAB [Concomitant]
  3. METHOTREXATE [Concomitant]

REACTIONS (2)
  - CARDIAC DISORDER [None]
  - HYPERTENSION [None]
